FAERS Safety Report 8046612-8 (Version None)
Quarter: 2012Q1

REPORT INFORMATION
  Report Type: 
  Country: None (occurrence: None)
  Receive Date: 20120114
  Receipt Date: 20111130
  Transmission Date: 20120608
  Serious: No
  Sender: FDA-Public Use
  Company Number: US-BAYER-2012-003821

PATIENT
  Age: -1 Year
  Sex: Female

DRUGS (1)
  1. ALEVE (CAPLET) [Suspect]
     Indication: PRODUCT USED FOR UNKNOWN INDICATION
     Dosage: UNK
     Route: 048
     Dates: start: 20111129

REACTIONS (2)
  - DIZZINESS [None]
  - DRUG HYPERSENSITIVITY [None]
